FAERS Safety Report 4892180-9 (Version None)
Quarter: 2006Q1

REPORT INFORMATION
  Report Type: 
  Country: None (occurrence: None)
  Receive Date: 20060126
  Receipt Date: 20051222
  Transmission Date: 20060701
  Serious: Yes (Hospitalization)
  Sender: FDA-Public Use
  Company Number: US-AMGEN-US162890

PATIENT
  Age: 59 Year
  Sex: Female
  Weight: 89.9 kg

DRUGS (1)
  1. PROCRIT [Suspect]
     Indication: RENAL FAILURE CHRONIC
     Dates: start: 20050501

REACTIONS (2)
  - DIABETIC FOOT [None]
  - THERAPEUTIC RESPONSE DECREASED [None]
